FAERS Safety Report 8252680-0 (Version None)
Quarter: 2012Q2

REPORT INFORMATION
  Report Type: 
  Country: None (occurrence: None)
  Receive Date: 20120402
  Receipt Date: 20110810
  Transmission Date: 20120825
  Serious: No
  Sender: FDA-Public Use
  Company Number: US-ABBOTT-11P-163-0847026-00

PATIENT
  Sex: Male
  Weight: 95.34 kg

DRUGS (3)
  1. CELEBREX [Concomitant]
     Indication: BACK PAIN
     Dosage: PROTONIX - ACID REFLUX
  2. PROTONIX [Concomitant]
     Indication: GASTROOESOPHAGEAL REFLUX DISEASE
  3. ANDROGEL [Suspect]
     Indication: BLOOD TESTOSTERONE DECREASED
     Dosage: 2 PACKETS 1 IN AM AND 1 IN EVENING
     Route: 061
     Dates: start: 20080101

REACTIONS (4)
  - DRUG INEFFECTIVE [None]
  - CHEST PAIN [None]
  - HEADACHE [None]
  - LETHARGY [None]
